FAERS Safety Report 9208794 (Version 1)
Quarter: 2013Q2

REPORT INFORMATION
  Report Type: Spontaneous
  Country: US (occurrence: US)
  Receive Date: 20130404
  Receipt Date: 20130404
  Transmission Date: 20140414
  Serious: No
  Sender: FDA-Public Use
  Company Number: US-PFIZER INC-2013103382

PATIENT
  Age: 62 Year
  Sex: Male
  Weight: 58.9 kg

DRUGS (9)
  1. SUTENT [Suspect]
     Dosage: 50 MG, UNK
     Dates: start: 20130304
  2. GLEEVEC [Suspect]
     Dosage: UNK
     Dates: end: 20130303
  3. PROTONIX [Concomitant]
     Dosage: UNK
  4. BETAMETHASONE [Concomitant]
     Dosage: UNK
  5. ZOFRAN [Concomitant]
  6. COMPAZINE [Concomitant]
     Dosage: UNK
  7. SIMVASTATIN [Concomitant]
     Dosage: UNK
  8. LISINOPRIL [Concomitant]
     Dosage: UNK
  9. FERROUS SULFATE [Concomitant]
     Dosage: UNK

REACTIONS (5)
  - Yellow skin [Unknown]
  - Ocular icterus [Unknown]
  - Decreased appetite [Unknown]
  - Diarrhoea [Unknown]
  - Burning sensation [Unknown]
